FAERS Safety Report 5266031-7 (Version None)
Quarter: 2007Q1

REPORT INFORMATION
  Report Type: 
  Country: None (occurrence: None)
  Receive Date: 20070313
  Receipt Date: 20070313
  Transmission Date: 20070707
  Serious: Yes (Death)
  Sender: FDA-Public Use
  Company Number: None

PATIENT
  Age: 71 Year
  Sex: Female
  Weight: 82.5 kg

DRUGS (1)
  1. NAFCILLIN SODIUM [Suspect]
     Indication: ENDOCARDITIS STAPHYLOCOCCAL
     Dosage: 2 GRAMS EVERY 4 HOURS IV
     Route: 042
     Dates: start: 20070131, end: 20070307

REACTIONS (2)
  - FEBRILE NEUTROPENIA [None]
  - SEPTIC SHOCK [None]
